FAERS Safety Report 5655687-2 (Version None)
Quarter: 2008Q1

REPORT INFORMATION
  Report Type: 
  Country: None (occurrence: None)
  Receive Date: 20080307
  Receipt Date: 20080226
  Transmission Date: 20080703
  Serious: Yes (Hospitalization)
  Sender: FDA-Public Use
  Company Number: DE-ABBOTT-08P-062-0434117-00

PATIENT
  Sex: Female
  Weight: 65 kg

DRUGS (9)
  1. HUMIRA [Suspect]
     Indication: RHEUMATOID ARTHRITIS
     Route: 058
     Dates: start: 20070129, end: 20080114
  2. METHOTREXATE [Concomitant]
     Indication: RHEUMATOID ARTHRITIS
     Dates: start: 19910101, end: 20040101
  3. LEFLUNOMIDE [Concomitant]
     Indication: RHEUMATOID ARTHRITIS
     Dates: start: 20040101, end: 20070128
  4. ISOSORBIDE MONONITRATE [Concomitant]
     Indication: DRUG USE FOR UNKNOWN INDICATION
  5. ALENDRONIC ACID [Concomitant]
     Indication: OSTEOPOROSIS
  6. CALCIUM [Concomitant]
     Indication: OSTEOPOROSIS
  7. TOCOPHEROL CONCENTRATE CAP [Concomitant]
     Indication: DRUG USE FOR UNKNOWN INDICATION
  8. HEPARIN [Concomitant]
     Indication: THROMBOSIS
     Dates: start: 20071025
  9. INDOMETHACIN [Concomitant]
     Indication: RHEUMATOID ARTHRITIS
     Dates: start: 19690101

REACTIONS (5)
  - CARDIAC TAMPONADE [None]
  - DYSPNOEA [None]
  - PERICARDIAL EFFUSION [None]
  - RENAL FAILURE [None]
  - VENOUS THROMBOSIS [None]
